FAERS Safety Report 6821221-4 (Version None)
Quarter: 2010Q3

REPORT INFORMATION
  Report Type: 
  Country: None (occurrence: None)
  Receive Date: 20100707
  Receipt Date: 20080409
  Transmission Date: 20110219
  Serious: No
  Sender: FDA-Public Use
  Company Number: US-PFIZER INC-2008010600

PATIENT
  Sex: Female
  Weight: 75.75 kg

DRUGS (8)
  1. ZOLOFT [Suspect]
     Indication: ANXIETY
     Dates: start: 20051228
  2. ZOLOFT [Suspect]
     Indication: DEPRESSION
  3. NORVASC [Concomitant]
     Indication: HYPERTENSION
  4. ATENOLOL [Concomitant]
     Indication: HYPERTENSION
  5. LISINOPRIL [Concomitant]
     Indication: HYPERTENSION
  6. SITAGLIPTIN [Concomitant]
     Indication: DIABETES MELLITUS
  7. GLIPIZIDE [Concomitant]
     Indication: DIABETES MELLITUS
  8. DIAMOX SRC [Concomitant]
     Indication: GLAUCOMA

REACTIONS (2)
  - BALANCE DISORDER [None]
  - WEIGHT INCREASED [None]
